FAERS Safety Report 17605416 (Version 1)
Quarter: 2020Q1

REPORT INFORMATION
  Report Type: Spontaneous
  Country: US (occurrence: US)
  Receive Date: 20200331
  Receipt Date: 20200331
  Transmission Date: 20200409
  Serious: Yes (Death)
  Sender: FDA-Public Use
  Company Number: None

PATIENT
  Age: 41 Year
  Sex: Male
  Weight: 143 kg

DRUGS (9)
  1. CISATRICURIUM [Concomitant]
  2. DOXYCYCLINE. [Concomitant]
     Active Substance: DOXYCYCLINE
  3. MIDAZOLAM. [Concomitant]
     Active Substance: MIDAZOLAM
  4. ACETAMINOPHEN. [Concomitant]
     Active Substance: ACETAMINOPHEN
  5. CEFTRIAXONE. [Concomitant]
     Active Substance: CEFTRIAXONE
  6. FENTANYL. [Concomitant]
     Active Substance: FENTANYL
  7. HYDROXYCHLOROQUINE [Suspect]
     Active Substance: HYDROXYCHLOROQUINE
     Route: 048
  8. HEPARIN [Concomitant]
     Active Substance: HEPARIN SODIUM
  9. PANTOPRAZOLE [Concomitant]
     Active Substance: PANTOPRAZOLE

REACTIONS (6)
  - Pneumonia [None]
  - Corona virus infection [None]
  - Renal failure [None]
  - Ventricular tachycardia [None]
  - Cardiac arrest [None]
  - Acute respiratory distress syndrome [None]

NARRATIVE: CASE EVENT DATE: 20200329
